FAERS Safety Report 7642696-7 (Version None)
Quarter: 2011Q3

REPORT INFORMATION
  Report Type: 
  Country: None (occurrence: None)
  Receive Date: 20110728
  Receipt Date: 20110725
  Transmission Date: 20111222
  Serious: No
  Sender: FDA-Public Use
  Company Number: US-PFIZER INC-2011169770

PATIENT
  Sex: Male
  Weight: 85.261 kg

DRUGS (7)
  1. AMBIEN [Concomitant]
     Indication: SOMNOLENCE
     Dosage: 10 MG, DAILY
  2. NORVASC [Concomitant]
     Indication: HYPERTENSION
     Dosage: 10 MG, DAILY
  3. SEROQUEL [Concomitant]
     Indication: SLEEP DISORDER
     Dosage: 300 MG, 2X/DAY
  4. NARDIL [Suspect]
     Indication: DEPRESSION
     Dosage: 8 TABLETS IN A DAY
  5. NARDIL [Suspect]
     Dosage: 50 MG, 3X/DAY
  6. KLONOPIN [Concomitant]
     Indication: ANXIETY
     Dosage: 1 MG, 3X/DAY
  7. BENAZEPRIL [Concomitant]
     Indication: HYPERTENSION
     Dosage: 10 MG, 2X/DAY

REACTIONS (3)
  - FEELING ABNORMAL [None]
  - OVERDOSE [None]
  - INSOMNIA [None]
